FAERS Safety Report 14897148 (Version 1)
Quarter: 2018Q2

REPORT INFORMATION
  Report Type: Spontaneous
  Country: SA (occurrence: SA)
  Receive Date: 20180515
  Receipt Date: 20180515
  Transmission Date: 20180711
  Serious: Yes (Death, Other)
  Sender: FDA-Public Use
  Company Number: SA-EPIC PHARMA LLC-2018EPC00255

PATIENT
  Age: 52 Year
  Sex: Male

DRUGS (1)
  1. CITALOPRAM [Suspect]
     Active Substance: CITALOPRAM HYDROBROMIDE
     Route: 065

REACTIONS (4)
  - Rhabdomyolysis [Unknown]
  - Acute kidney injury [Unknown]
  - Serotonin syndrome [Fatal]
  - Hyperkalaemia [Unknown]
